FAERS Safety Report 8227957-5 (Version None)
Quarter: 2012Q1

REPORT INFORMATION
  Report Type: 
  Country: None (occurrence: None)
  Receive Date: 20120322
  Receipt Date: 20120314
  Transmission Date: 20120608
  Serious: Yes (Other)
  Sender: FDA-Public Use
  Company Number: PHHY2012TR022476

PATIENT
  Age: 53 Year
  Sex: Female

DRUGS (5)
  1. DOXORUBICIN HCL [Suspect]
     Indication: BREAST CANCER
  2. GRANISETRON [Concomitant]
     Indication: ANTIEMETIC SUPPORTIVE CARE
  3. FLUOROURACIL [Suspect]
     Indication: BREAST CANCER
  4. ANTIDEPRESSANTS [Concomitant]
  5. DOCETAXEL [Suspect]
     Indication: BREAST CANCER

REACTIONS (2)
  - FEMALE ORGASMIC DISORDER [None]
  - LIBIDO INCREASED [None]
